FAERS Safety Report 7247241-6 (Version None)
Quarter: 2011Q1

REPORT INFORMATION
  Report Type: 
  Country: None (occurrence: None)
  Receive Date: 20110127
  Receipt Date: 20101115
  Transmission Date: 20110831
  Serious: No
  Sender: FDA-Public Use
  Company Number: US-BAYER-201021669BCC

PATIENT
  Sex: Female
  Weight: 55 kg

DRUGS (6)
  1. NORVASC [Concomitant]
     Indication: HYPERTENSION
  2. ALEVE [Suspect]
     Indication: PRODUCT USED FOR UNKNOWN INDICATION
     Dosage: 220 MG, QD
     Route: 048
     Dates: start: 20100921, end: 20100922
  3. ONE A DAY ENERGY [Concomitant]
  4. PREMPRO [Concomitant]
     Indication: MENOPAUSE
  5. ASPIRIN [Concomitant]
     Dosage: DAILY DOSE 81 MG
  6. AMBIEN [Concomitant]
     Indication: INSOMNIA

REACTIONS (1)
  - RASH [None]
